FAERS Safety Report 26044016 (Version 1)
Quarter: 2025Q4

REPORT INFORMATION
  Report Type: Report from Study
  Country: CA (occurrence: CA)
  Receive Date: 20251114
  Receipt Date: 20251114
  Transmission Date: 20260117
  Serious: Yes (Other)
  Sender: CELLTRION
  Company Number: CA-CELLTRION INC.-2025CA022982

PATIENT

DRUGS (6)
  1. USTEKINUMAB [Suspect]
     Active Substance: USTEKINUMAB
     Indication: Crohn^s disease
     Dosage: 520 MG
     Route: 042
     Dates: start: 20250704
  2. USTEKINUMAB [Suspect]
     Active Substance: USTEKINUMAB
     Indication: Crohn^s disease
     Dosage: 90 MG EVERY 8 WEEKS
     Route: 058
     Dates: start: 20250704
  3. USTEKINUMAB [Suspect]
     Active Substance: USTEKINUMAB
     Dosage: 29 AUG
  4. USTEKINUMAB [Suspect]
     Active Substance: USTEKINUMAB
     Dosage: 24 OCT
  5. USTEKINUMAB [Suspect]
     Active Substance: USTEKINUMAB
     Dosage: INJECT THE CONTENTS OF 1 SYRINGE (90MG) SC AT WEEK 8 AND  EVERY 8 WEEKS THEREAFTER
     Route: 058
  6. RAMIPRIL [Concomitant]
     Active Substance: RAMIPRIL
     Indication: Hypertension
     Dosage: 5 MG, DAILY

REACTIONS (8)
  - Pain in extremity [Not Recovered/Not Resolved]
  - Back pain [Not Recovered/Not Resolved]
  - Nerve compression [Not Recovered/Not Resolved]
  - Hypertension [Not Recovered/Not Resolved]
  - Gait inability [Not Recovered/Not Resolved]
  - Nausea [Unknown]
  - Headache [Unknown]
  - Dizziness [Unknown]

NARRATIVE: CASE EVENT DATE: 20250704
